FAERS Safety Report 16269279 (Version 1)
Quarter: 2019Q2

REPORT INFORMATION
  Report Type: Spontaneous
  Country: US (occurrence: US)
  Receive Date: 20190502
  Receipt Date: 20190502
  Transmission Date: 20190711
  Serious: Yes (Hospitalization)
  Sender: FDA-Public Use
  Company Number: None

PATIENT
  Age: 76 Year
  Sex: Male
  Weight: 158.3 kg

DRUGS (12)
  1. ASPIRIN. [Concomitant]
     Active Substance: ASPIRIN
  2. CLONIDINE. [Concomitant]
     Active Substance: CLONIDINE
  3. HYDROCHLOROTHIAZIDE/TRIAMTERENE [Concomitant]
     Active Substance: HYDROCHLOROTHIAZIDE\TRIAMTERENE
  4. NAPROXEN. [Concomitant]
     Active Substance: NAPROXEN
  5. PRAVASTATIN. [Concomitant]
     Active Substance: PRAVASTATIN
  6. QUINAPRIL. [Suspect]
     Active Substance: QUINAPRIL
     Dates: end: 20190501
  7. CHOLECALCIFEROL [Concomitant]
     Active Substance: CHOLECALCIFEROL
  8. NIACIN. [Concomitant]
     Active Substance: NIACIN
  9. AMLODIPINE [Concomitant]
     Active Substance: AMLODIPINE BESYLATE
  10. ALBUTEROL. [Concomitant]
     Active Substance: ALBUTEROL
  11. ASCORBIC ACID. [Concomitant]
     Active Substance: ASCORBIC ACID
  12. TAMSULOSIN [Concomitant]
     Active Substance: TAMSULOSIN

REACTIONS (1)
  - Angioedema [None]

NARRATIVE: CASE EVENT DATE: 20190501
